FAERS Safety Report 8014383-7 (Version None)
Quarter: 2011Q4

REPORT INFORMATION
  Report Type: 
  Country: None (occurrence: None)
  Receive Date: 20111229
  Receipt Date: 20111227
  Transmission Date: 20120403
  Serious: Yes (Hospitalization, Other)
  Sender: FDA-Public Use
  Company Number: PHEH2009US07511

PATIENT
  Sex: Female
  Weight: 63.6 kg

DRUGS (30)
  1. ZOMETA [Suspect]
     Dosage: 4 MG, QMO
     Route: 042
  2. FENTANYL [Concomitant]
  3. METHADONE HCL [Concomitant]
     Dosage: 10 MG, TID
     Route: 048
  4. AREDIA [Suspect]
  5. COUMADIN [Concomitant]
  6. FLEXERIL [Concomitant]
  7. SYNTHROID [Concomitant]
  8. ACCUPRIL [Concomitant]
  9. ZOSYN [Concomitant]
  10. VANCOMYCIN [Concomitant]
  11. PROPOFOL [Concomitant]
  12. LYRICA [Concomitant]
  13. WELLBUTRIN [Concomitant]
  14. XANAX [Concomitant]
  15. REGLAN [Concomitant]
  16. AVASTIN [Concomitant]
  17. VICODIN [Concomitant]
  18. CEFEPIME [Concomitant]
     Dosage: 1 G, Q12H
     Route: 042
  19. FLAGYL [Concomitant]
     Dosage: 500 MG, Q12H
     Route: 042
  20. NEURONTIN [Concomitant]
  21. DIPHTHERIA VACCINE [Concomitant]
  22. LIDOCAINE [Concomitant]
  23. CYMBALTA [Concomitant]
     Dosage: 60 MG, QD
     Route: 048
  24. TRAZODONE HCL [Concomitant]
  25. ABRAXANE [Concomitant]
  26. RESTORIL [Concomitant]
  27. TETANUS VACCINE                    /01594701/ [Concomitant]
  28. LEXAPRO [Concomitant]
  29. PREVACID [Concomitant]
  30. PROTONIX [Concomitant]

REACTIONS (70)
  - WEIGHT DECREASED [None]
  - ANXIETY [None]
  - PULMONARY EMBOLISM [None]
  - OSTEONECROSIS OF JAW [None]
  - NEOPLASM PROGRESSION [None]
  - STOMATITIS [None]
  - DYSPHONIA [None]
  - DYSPNOEA EXERTIONAL [None]
  - PNEUMONIA [None]
  - TACHYCARDIA [None]
  - ARTHRALGIA [None]
  - DRY MOUTH [None]
  - GASTRITIS [None]
  - MALIGNANT NEOPLASM OF SPINAL CORD [None]
  - OSTEOARTHRITIS [None]
  - PYREXIA [None]
  - HYPERCHOLESTEROLAEMIA [None]
  - SUICIDAL IDEATION [None]
  - NAUSEA [None]
  - NECK PAIN [None]
  - DIARRHOEA [None]
  - LUMBAR SPINAL STENOSIS [None]
  - WEIGHT INCREASED [None]
  - HALLUCINATION [None]
  - ORAL PAIN [None]
  - BRAIN NEOPLASM MALIGNANT [None]
  - GENERAL PHYSICAL HEALTH DETERIORATION [None]
  - METASTASES TO LIVER [None]
  - BRONCHITIS [None]
  - PULMONARY HILUM MASS [None]
  - CONFUSIONAL STATE [None]
  - BREAST CANCER METASTATIC [None]
  - DEEP VEIN THROMBOSIS [None]
  - INJURY [None]
  - JOINT SWELLING [None]
  - LACERATION [None]
  - ACQUIRED OESOPHAGEAL WEB [None]
  - HAEMORRHOIDS [None]
  - NEOPLASM MALIGNANT [None]
  - EPISTAXIS [None]
  - NEUROPATHY PERIPHERAL [None]
  - MENTAL STATUS CHANGES [None]
  - METASTASES TO BONE [None]
  - INTERVERTEBRAL DISC DEGENERATION [None]
  - GASTROINTESTINAL HAEMORRHAGE [None]
  - ANIMAL BITE [None]
  - HYPOTHYROIDISM [None]
  - ABDOMINAL PAIN [None]
  - COUGH [None]
  - HYPERTENSION [None]
  - NIGHT SWEATS [None]
  - BACK PAIN [None]
  - ACQUIRED DIAPHRAGMATIC EVENTRATION [None]
  - CERVICOBRACHIAL SYNDROME [None]
  - PAIN [None]
  - ANHEDONIA [None]
  - HAEMOPTYSIS [None]
  - GASTROOESOPHAGEAL REFLUX DISEASE [None]
  - DEPRESSION [None]
  - MOUTH ULCERATION [None]
  - SPONDYLOLISTHESIS [None]
  - INTERVERTEBRAL DISC PROTRUSION [None]
  - NORMOCHROMIC NORMOCYTIC ANAEMIA [None]
  - OEDEMA PERIPHERAL [None]
  - RASH ERYTHEMATOUS [None]
  - SYNOVITIS [None]
  - ARTHROPATHY [None]
  - HIATUS HERNIA [None]
  - SPLENOMEGALY [None]
  - HEPATOMEGALY [None]
